FAERS Safety Report 19667650 (Version 2)
Quarter: 2021Q3

REPORT INFORMATION
  Report Type: Spontaneous
  Country: US (occurrence: US)
  Receive Date: 20210806
  Receipt Date: 20210903
  Transmission Date: 20211014
  Serious: Yes (Other)
  Sender: FDA-Public Use
  Company Number: US-ELI_LILLY_AND_COMPANY-US202108001739

PATIENT
  Sex: Female

DRUGS (4)
  1. HUMULIN N [Suspect]
     Active Substance: INSULIN HUMAN
     Dosage: 45 U, DAILY AT BEDTIME
     Route: 058
  2. HUMULIN N [Suspect]
     Active Substance: INSULIN HUMAN
     Indication: GESTATIONAL DIABETES
     Dosage: 45 U, DAILY AT BEDTIME
     Route: 058
  3. HUMALOG [Suspect]
     Active Substance: INSULIN LISPRO
     Indication: GESTATIONAL DIABETES
     Dosage: 6 U, OTHER BEFORE EACH MEAL
     Route: 058
  4. HUMALOG [Suspect]
     Active Substance: INSULIN LISPRO
     Dosage: 6 U, OTHER BEFORE EACH MEAL
     Route: 058

REACTIONS (4)
  - Insulin resistance [Unknown]
  - Maternal exposure during pregnancy [Not Recovered/Not Resolved]
  - High risk pregnancy [Unknown]
  - Polycystic ovaries [Unknown]
